FAERS Safety Report 23509581 (Version 1)
Quarter: 2024Q1

REPORT INFORMATION
  Report Type: Spontaneous
  Country: US (occurrence: US)
  Receive Date: 20240210
  Receipt Date: 20240210
  Transmission Date: 20240410
  Serious: Yes (Hospitalization)
  Sender: FDA-Public Use
  Company Number: US-SA-SAC20240208000282

PATIENT
  Age: 40 Year
  Sex: Female

DRUGS (51)
  1. DUPIXENT [Suspect]
     Active Substance: DUPILUMAB
     Indication: Asthma
     Dosage: 300MG, QOW
     Route: 058
     Dates: start: 20230313
  2. ALBUTEROL SULFATE [Concomitant]
     Active Substance: ALBUTEROL SULFATE
  3. ALLEGRA ALLERGY [Concomitant]
     Active Substance: FEXOFENADINE HYDROCHLORIDE
  4. AMLODIPINE [Concomitant]
     Active Substance: AMLODIPINE BESYLATE
  5. ARNUITY ELLIPTA [Concomitant]
     Active Substance: FLUTICASONE FUROATE
  6. ATORVASTATIN [Concomitant]
     Active Substance: ATORVASTATIN
  7. AZELASTINE HYDROCHLORIDE [Concomitant]
     Active Substance: AZELASTINE HYDROCHLORIDE
  8. BUDESONIDE [Concomitant]
     Active Substance: BUDESONIDE
  9. BUSPIRONE HCL [Concomitant]
     Active Substance: BUSPIRONE HYDROCHLORIDE
  10. CALCIUM [Concomitant]
     Active Substance: CALCIUM
  11. CICLOPIROX [Concomitant]
     Active Substance: CICLOPIROX\TOCOPHEROL
  12. CLINDAMYCIN [Concomitant]
     Active Substance: CLINDAMYCIN
  13. D-MANNOSE [Concomitant]
  14. DEPLIN [CALCIUM LEVOMEFOLATE] [Concomitant]
  15. DOXEPIN HCL [Concomitant]
     Active Substance: DOXEPIN HYDROCHLORIDE
  16. DULOXETINE HYDROCHLORIDE [Concomitant]
     Active Substance: DULOXETINE HYDROCHLORIDE
  17. EPINEPHRINE [Concomitant]
     Active Substance: EPINEPHRINE
  18. EZETIMIBE [Concomitant]
     Active Substance: EZETIMIBE
  19. FLUTICASONE [Concomitant]
     Active Substance: FLUTICASONE
  20. GAS RELIEF [Concomitant]
     Active Substance: DIMETHICONE
  21. GAVISCON EXTRA [Concomitant]
  22. GLUCOSAMINE [Concomitant]
     Active Substance: GLUCOSAMINE
  23. LACOSAMIDE [Concomitant]
     Active Substance: LACOSAMIDE
  24. LITHIUM CARBONATE [Concomitant]
     Active Substance: LITHIUM CARBONATE
  25. METAMUCIL [Concomitant]
     Active Substance: PLANTAGO SEED
  26. MONTELUKAST [Concomitant]
     Active Substance: MONTELUKAST SODIUM
  27. MYRBETRIQ [Concomitant]
     Active Substance: MIRABEGRON
  28. NAYZILAM [Concomitant]
     Active Substance: MIDAZOLAM
  29. NYSTATIN;TRIAMCINOLONE [Concomitant]
  30. ONDANSETRON [Concomitant]
     Active Substance: ONDANSETRON
  31. OXYBUTYNIN CHLORIDE [Concomitant]
     Active Substance: OXYBUTYNIN CHLORIDE
  32. PEPCID [Concomitant]
     Active Substance: FAMOTIDINE
  33. PRILOSEC [Concomitant]
     Active Substance: OMEPRAZOLE MAGNESIUM
  34. RITALIN [Concomitant]
     Active Substance: METHYLPHENIDATE HYDROCHLORIDE
  35. SOLIFENACIN [SOLIFENACIN SUCCINATE] [Concomitant]
  36. SPIRIVA RESPIMAT [Concomitant]
     Active Substance: TIOTROPIUM BROMIDE
  37. TOPIRAMATE [Concomitant]
     Active Substance: TOPIRAMATE
  38. TRADJENTA [Concomitant]
     Active Substance: LINAGLIPTIN
  39. UBRELVY [Concomitant]
     Active Substance: UBROGEPANT
  40. VENTOLIN HFA [Concomitant]
     Active Substance: ALBUTEROL SULFATE
  41. CYANOCOBALAMIN [Concomitant]
     Active Substance: CYANOCOBALAMIN
  42. VITAMIN B6 [Concomitant]
     Active Substance: PYRIDOXINE HYDROCHLORIDE
  43. VITAMIN D3 [Concomitant]
     Active Substance: CHOLECALCIFEROL
  44. DICLOFENAC [Concomitant]
     Active Substance: DICLOFENAC
  45. ALLEGRA D [FEXOFENADINE HYDROCHLORIDE;PSEUDOEPHEDRINE HYDROCHLORIDE] [Concomitant]
  46. CHLORHEXIDINE [Concomitant]
     Active Substance: CHLORHEXIDINE\CHLORHEXIDINE GLUCONATE
  47. NORETHINDRONE [Concomitant]
     Active Substance: NORETHINDRONE
  48. HYDROCORT 1 A PHARMA [Concomitant]
  49. DIETARY SUPPLEMENT [Concomitant]
     Active Substance: DIETARY SUPPLEMENT
  50. ITCH RELIEF [Concomitant]
  51. DEXTROSE [Concomitant]
     Active Substance: DEXTROSE\DEXTROSE MONOHYDRATE

REACTIONS (2)
  - Fall [Unknown]
  - Clavicle fracture [Unknown]

NARRATIVE: CASE EVENT DATE: 20240101
